FAERS Safety Report 19502698 (Version 1)
Quarter: 2021Q3

REPORT INFORMATION
  Report Type: Spontaneous
  Country: US (occurrence: US)
  Receive Date: 20210707
  Receipt Date: 20210707
  Transmission Date: 20211014
  Serious: No
  Sender: FDA-Public Use
  Company Number: US-BAYER-2021-170598

PATIENT
  Age: 36 Year
  Sex: Male
  Weight: 170 kg

DRUGS (2)
  1. GADAVIST [Suspect]
     Active Substance: GADOBUTROL
     Indication: MAGNETIC RESONANCE IMAGING NECK
  2. GADAVIST [Suspect]
     Active Substance: GADOBUTROL
     Indication: CHRONIC TONSILLITIS
     Dosage: 7.5 ML, ONCE
     Route: 042
     Dates: start: 20210527, end: 20210527

REACTIONS (3)
  - Feeling hot [None]
  - Hypersensitivity [None]
  - Pruritus [None]

NARRATIVE: CASE EVENT DATE: 20210527
